FAERS Safety Report 6526680-2 (Version None)
Quarter: 2010Q1

REPORT INFORMATION
  Report Type: 
  Country: None (occurrence: None)
  Receive Date: 20100104
  Receipt Date: 20100104
  Transmission Date: 20100710
  Serious: No
  Sender: FDA-Public Use
  Company Number: None

PATIENT
  Age: 51 Year
  Sex: Female
  Weight: 57.1532 kg

DRUGS (1)
  1. SUMATRIPTAN SUCCINATE (IMITREX) [Suspect]
     Dosage: 25 MG 1 TAB REPEAT 2 HRS PO
     Route: 048

REACTIONS (1)
  - DRUG INEFFECTIVE [None]
